FAERS Safety Report 21870351 (Version 3)
Quarter: 2023Q2

REPORT INFORMATION
  Report Type: Report from Study
  Country: US (occurrence: US)
  Receive Date: 20230117
  Receipt Date: 20230503
  Transmission Date: 20230721
  Serious: Yes (Hospitalization, Other)
  Sender: FDA-Public Use
  Company Number: US-002147023-NVSC2023US007624

PATIENT
  Sex: Male

DRUGS (2)
  1. ENTRESTO [Suspect]
     Active Substance: SACUBITRIL\VALSARTAN
     Indication: Product used for unknown indication
     Dosage: 1 DOSAGE FORM, BID (24/26MG 2 TABS)
     Route: 048
  2. ENTRESTO [Suspect]
     Active Substance: SACUBITRIL\VALSARTAN
     Dosage: 1 DOSAGE FORM, BID (2 TABS)
     Route: 048

REACTIONS (9)
  - Dyspnoea [Unknown]
  - Pulmonary oedema [Unknown]
  - Wheezing [Unknown]
  - Cough [Unknown]
  - Pneumonia [Unknown]
  - Asthenia [Unknown]
  - Angioedema [Unknown]
  - Arthralgia [Unknown]
  - Sciatica [Unknown]
